FAERS Safety Report 9353115 (Version 1)
Quarter: 2013Q2

REPORT INFORMATION
  Report Type: Spontaneous
  Country: FR (occurrence: FR)
  Receive Date: 20130618
  Receipt Date: 20130618
  Transmission Date: 20140414
  Serious: Yes (Other)
  Sender: FDA-Public Use
  Company Number: FR-MYLANLABS-2013S1012616

PATIENT
  Age: 35 Year
  Sex: Male
  Weight: 120 kg

DRUGS (11)
  1. CLOZAPINE [Suspect]
     Indication: SCHIZOPHRENIA, PARANOID TYPE
     Dosage: 50 MG/DAY (ON THE FIFTH DAY)
     Route: 065
     Dates: start: 20110310
  2. CLOZAPINE [Suspect]
     Indication: SCHIZOPHRENIA, PARANOID TYPE
     Dosage: 100 MG/DAY (ON THE EIGHTH DAY)
     Route: 065
     Dates: start: 20110310
  3. RISPERIDONE [Suspect]
     Indication: SCHIZOPHRENIA, PARANOID TYPE
     Dosage: 18 MG/DAY
     Route: 065
  4. RISPERIDONE [Suspect]
     Indication: SCHIZOPHRENIA, PARANOID TYPE
     Dosage: 12 MG/DAY
     Route: 065
  5. FLUPHENAZINE [Suspect]
     Indication: SCHIZOPHRENIA, PARANOID TYPE
     Dosage: 100 MG/DAY
     Route: 065
  6. LOXAPINE [Concomitant]
     Indication: SEDATIVE THERAPY
     Dosage: HIGH DOSES
     Route: 065
  7. CLONAZEPAM [Concomitant]
     Indication: SEDATIVE THERAPY
     Dosage: HIGH DOSES
     Route: 065
  8. HYDROXYZINE [Concomitant]
     Indication: SEDATIVE THERAPY
     Dosage: HIGH DOSES
     Route: 065
  9. HALOPERIDOL [Concomitant]
     Indication: SCHIZOPHRENIA, PARANOID TYPE
     Dosage: 40 MG/DAY
     Route: 065
  10. MORPHINE [Concomitant]
     Indication: SEDATIVE THERAPY
     Dosage: HIGH DOSES
     Route: 065
  11. PROMETHAZINE [Concomitant]
     Indication: SEDATIVE THERAPY
     Dosage: HIGH DOSES
     Route: 065

REACTIONS (2)
  - Neutropenia [Recovered/Resolved]
  - Electrocardiogram QT prolonged [Recovered/Resolved]
